FAERS Safety Report 9423249 (Version 2)
Quarter: 2013Q3

REPORT INFORMATION
  Report Type: Spontaneous
  Country: US (occurrence: US)
  Receive Date: 20130726
  Receipt Date: 20130731
  Transmission Date: 20140515
  Serious: No
  Sender: FDA-Public Use
  Company Number: US-PFIZER INC-2013217402

PATIENT
  Sex: Male

DRUGS (12)
  1. XELJANZ [Suspect]
     Indication: RHEUMATOID ARTHRITIS
     Dosage: 5 MG, 2X/DAY
     Route: 048
     Dates: start: 20130520
  2. SINGULAIR [Concomitant]
     Dosage: UNK
  3. PRO-AIR [Concomitant]
     Dosage: UNK
  4. GLIPIZIDE [Concomitant]
     Dosage: UNK
  5. METFORMIN [Concomitant]
     Dosage: UNK
  6. TRICOR [Concomitant]
     Dosage: UNK
  7. ALLOPURINOL [Concomitant]
     Dosage: UNK
  8. LOVAZA [Concomitant]
     Dosage: UNK
  9. NEXIUM [Concomitant]
     Dosage: UNK
  10. CYMBALTA [Concomitant]
     Dosage: UNK
  11. ZYRTEC [Concomitant]
     Dosage: UNK
  12. NORCO [Concomitant]
     Dosage: UNK

REACTIONS (1)
  - Diarrhoea [Unknown]
